FAERS Safety Report 7394197-1 (Version None)
Quarter: 2011Q2

REPORT INFORMATION
  Report Type: 
  Country: None (occurrence: None)
  Receive Date: 20110405
  Receipt Date: 20110328
  Transmission Date: 20111010
  Serious: Yes (Hospitalization)
  Sender: FDA-Public Use
  Company Number: IT-ELI_LILLY_AND_COMPANY-IT201104000061

PATIENT
  Sex: Female

DRUGS (2)
  1. METFORMIN [Concomitant]
     Dosage: 2500 MG, QD
  2. BYETTA [Suspect]
     Indication: TYPE 2 DIABETES MELLITUS
     Dosage: 5 UG, BID
     Route: 058
     Dates: start: 20110223, end: 20110323

REACTIONS (2)
  - CHOLECYSTITIS [None]
  - PANCREATITIS ACUTE [None]
